FAERS Safety Report 25891522 (Version 1)
Quarter: 2025Q4

REPORT INFORMATION
  Report Type: Spontaneous
  Country: US (occurrence: US)
  Receive Date: 20251007
  Receipt Date: 20251007
  Transmission Date: 20260118
  Serious: Yes (Other)
  Sender: SANOFI AVENTIS
  Company Number: US-SANOFI-02672305

PATIENT
  Age: 52 Year
  Sex: Female

DRUGS (12)
  1. DUPIXENT [Suspect]
     Active Substance: DUPILUMAB
     Indication: Chronic rhinosinusitis with nasal polyps
     Dosage: UNK
  2. DUPIXENT [Suspect]
     Active Substance: DUPILUMAB
     Indication: Asthma
  3. TIOTROPIUM [Concomitant]
     Active Substance: TIOTROPIUM
     Indication: Chronic rhinosinusitis with nasal polyps
     Dosage: 18 UG, QD
  4. TIOTROPIUM [Concomitant]
     Active Substance: TIOTROPIUM
     Indication: Asthma
  5. MONTELUKAST [Concomitant]
     Active Substance: MONTELUKAST
     Indication: Chronic rhinosinusitis with nasal polyps
     Dosage: 10 MG
  6. MONTELUKAST [Concomitant]
     Active Substance: MONTELUKAST
     Indication: Asthma
  7. PREDNISOLONE [Concomitant]
     Active Substance: PREDNISOLONE
     Indication: Chronic rhinosinusitis with nasal polyps
     Dosage: 10 MG
  8. PREDNISOLONE [Concomitant]
     Active Substance: PREDNISOLONE
     Indication: Asthma
     Dosage: 20 MG (INCREASED)
  9. MEPOLIZUMAB [Concomitant]
     Active Substance: MEPOLIZUMAB
     Indication: Chronic rhinosinusitis with nasal polyps
     Dosage: UNK
  10. MEPOLIZUMAB [Concomitant]
     Active Substance: MEPOLIZUMAB
     Indication: Asthma
  11. OMALIZUMAB [Concomitant]
     Active Substance: OMALIZUMAB
     Indication: Chronic rhinosinusitis with nasal polyps
     Dosage: UNK
  12. OMALIZUMAB [Concomitant]
     Active Substance: OMALIZUMAB
     Indication: Asthma

REACTIONS (6)
  - Eosinophilic granulomatosis with polyangiitis [Unknown]
  - Arthralgia [Unknown]
  - Pulmonary mass [Unknown]
  - Neuropathy peripheral [Unknown]
  - Lung opacity [Unknown]
  - Unmasking of previously unidentified disease [Unknown]
